FAERS Safety Report 6018567-9 (Version None)
Quarter: 2008Q4

REPORT INFORMATION
  Report Type: 
  Country: None (occurrence: None)
  Receive Date: 20081223
  Receipt Date: 20081215
  Transmission Date: 20090506
  Serious: Yes (Hospitalization)
  Sender: FDA-Public Use
  Company Number: IT-ROXANE LABORATORIES, INC.-2008-RO-00438RO

PATIENT
  Age: 34 Year
  Sex: Male

DRUGS (10)
  1. PREDNISONE TAB [Suspect]
     Indication: GLOMERULONEPHRITIS MEMBRANOUS
     Dosage: 75MG
     Route: 048
  2. PREDNISONE TAB [Suspect]
     Dosage: 50MG
     Route: 048
  3. IRBESARTAN [Suspect]
     Indication: GLOMERULONEPHRITIS MEMBRANOUS
     Dosage: 300MG
  4. METHYLPREDNISOLONE 16MG TAB [Suspect]
     Indication: GLOMERULONEPHRITIS MEMBRANOUS
     Dosage: 1G
     Route: 042
  5. NEBIVOLOL [Suspect]
     Indication: BLOOD PRESSURE INCREASED
     Dosage: 5MG
  6. ACETAMINOPHEN [Suspect]
     Indication: HEADACHE
  7. ACETAMINOPHEN [Suspect]
     Indication: ARTHRALGIA
  8. ACETAMINOPHEN [Suspect]
     Indication: PYREXIA
  9. CEFTRIAXONE [Concomitant]
     Indication: SECONDARY SYPHILIS
     Dosage: 2G
     Route: 042
  10. CEFTRIAXONE [Concomitant]
     Indication: CENTRAL NERVOUS SYSTEM INFECTION

REACTIONS (15)
  - ARTHRALGIA [None]
  - BLOOD PRESSURE INCREASED [None]
  - CENTRAL NERVOUS SYSTEM INFECTION [None]
  - EXFOLIATIVE RASH [None]
  - HEADACHE [None]
  - HYPERGAMMAGLOBULINAEMIA [None]
  - NECROTISING RETINITIS [None]
  - NORMOCHROMIC NORMOCYTIC ANAEMIA [None]
  - OEDEMA PERIPHERAL [None]
  - PELIOSIS HEPATIS [None]
  - PNEUMONIA MYCOPLASMAL [None]
  - RASH [None]
  - RETINAL VASCULITIS [None]
  - SCOTOMA [None]
  - SECONDARY SYPHILIS [None]
